FAERS Safety Report 13470578 (Version 1)
Quarter: 2017Q2

REPORT INFORMATION
  Report Type: Spontaneous
  Country: US (occurrence: US)
  Receive Date: 20170424
  Receipt Date: 20170424
  Transmission Date: 20170830
  Serious: Yes (Hospitalization, Other)
  Sender: FDA-Public Use
  Company Number: US-BRISTOL-MYERS SQUIBB COMPANY-BMS-2017-033673

PATIENT
  Sex: Female

DRUGS (1)
  1. ORENCIA [Suspect]
     Active Substance: ABATACEPT
     Indication: LYMPHADENOPATHY
     Dosage: 125 MG, QWK
     Route: 058

REACTIONS (4)
  - Fall [Unknown]
  - Product use in unapproved indication [Unknown]
  - Rib fracture [Unknown]
  - Spinal fracture [Unknown]
